FAERS Safety Report 8102019-6 (Version None)
Quarter: 2012Q1

REPORT INFORMATION
  Report Type: 
  Country: None (occurrence: None)
  Receive Date: 20120131
  Receipt Date: 20120127
  Transmission Date: 20120608
  Serious: Yes (Life-Threatening, Hospitalization, Other)
  Sender: FDA-Public Use
  Company Number: US-ASTRAZENECA-2012SE05764

PATIENT
  Age: 39 Year
  Sex: Male
  Weight: 108.9 kg

DRUGS (1)
  1. SEROQUEL [Suspect]
     Route: 048

REACTIONS (11)
  - DIABETES MELLITUS [None]
  - PYREXIA [None]
  - RESPIRATORY FAILURE [None]
  - DEPRESSION [None]
  - SEPSIS [None]
  - COMA [None]
  - UNRESPONSIVE TO STIMULI [None]
  - BLOOD GLUCOSE INCREASED [None]
  - BIPOLAR DISORDER [None]
  - FEELING ABNORMAL [None]
  - PNEUMONIA [None]
